FAERS Safety Report 8852158 (Version 1)
Quarter: 2012Q4

REPORT INFORMATION
  Report Type: 
  Country: FR (occurrence: FR)
  Receive Date: 20121022
  Receipt Date: 20121022
  Transmission Date: 20130627
  Serious: Yes (Hospitalization)
  Sender: FDA-Public Use
  Company Number: FR-PFIZER INC-2012258411

PATIENT
  Age: 69 Year
  Sex: Male

DRUGS (7)
  1. FELDENE [Suspect]
     Dosage: UNK
     Route: 048
     Dates: start: 20120420, end: 20120629
  2. DEBRIDAT [Concomitant]
     Indication: GASTROINTESTINAL DISORDER
     Dosage: UNK
     Route: 048
  3. DEROXAT [Concomitant]
     Dosage: UNK
     Route: 048
     Dates: start: 20120420
  4. INEXIUM [Concomitant]
     Indication: GASTROOESOPHAGEAL REFLUX DISEASE
     Dosage: UNK
     Route: 048
  5. URSOLVAN-200 [Concomitant]
     Indication: CHOLELITHIASIS
     Dosage: 200 mg, UNK
     Route: 048
  6. TOCO [Concomitant]
     Dosage: 500 mg, UNK
     Route: 048
  7. MOTILIUM [Concomitant]
     Indication: GASTROINTESTINAL DISORDER
     Dosage: UNK
     Route: 048

REACTIONS (1)
  - Hepatic function abnormal [Recovered/Resolved]
